FAERS Safety Report 7764649-0 (Version None)
Quarter: 2011Q3

REPORT INFORMATION
  Report Type: 
  Country: None (occurrence: None)
  Receive Date: 20110921
  Receipt Date: 20110916
  Transmission Date: 20111222
  Serious: Yes (Other)
  Sender: FDA-Public Use
  Company Number: PHHY2011AU82517

PATIENT
  Sex: Male

DRUGS (2)
  1. CLOZAPINE [Suspect]
     Dosage: 12.5 MG, UNK
  2. CLOZAPINE [Suspect]
     Indication: SCHIZOPHRENIA
     Dosage: 350 MG, UNK
     Dates: start: 20110729, end: 20110909

REACTIONS (9)
  - EOSINOPHILIA [None]
  - HYPOTENSION [None]
  - URINARY TRACT INFECTION [None]
  - TROPONIN INCREASED [None]
  - BODY TEMPERATURE INCREASED [None]
  - CHILLS [None]
  - C-REACTIVE PROTEIN INCREASED [None]
  - TYPE IV HYPERSENSITIVITY REACTION [None]
  - HYPERHIDROSIS [None]
